FAERS Safety Report 22598865 (Version 1)
Quarter: 2023Q2

REPORT INFORMATION
  Report Type: Spontaneous
  Country: PT (occurrence: PT)
  Receive Date: 20230614
  Receipt Date: 20230614
  Transmission Date: 20230721
  Serious: Yes (Death, Hospitalization, Other)
  Sender: FDA-Public Use
  Company Number: PT-SLATE RUN PHARMACEUTICALS-23PT001620

PATIENT

DRUGS (2)
  1. BUPROPION HYDROCHLORIDE [Suspect]
     Active Substance: BUPROPION HYDROCHLORIDE
     Indication: Depression
     Dosage: 2100 MILLIGRAM
     Route: 045
  2. BUPROPION HYDROCHLORIDE [Suspect]
     Active Substance: BUPROPION HYDROCHLORIDE
     Dosage: 300 MILLIGRAM, QD

REACTIONS (9)
  - Cardio-respiratory arrest [Fatal]
  - Psychomotor hyperactivity [Unknown]
  - Intentional product use issue [Unknown]
  - Impulsive behaviour [Unknown]
  - Acute myocardial infarction [Unknown]
  - Intentional overdose [None]
  - Irritability [Unknown]
  - Dyspnoea [Unknown]
  - Drug abuse [Unknown]
